FAERS Safety Report 8081720-7 (Version None)
Quarter: 2012Q1

REPORT INFORMATION
  Report Type: 
  Country: None (occurrence: None)
  Receive Date: 20120130
  Receipt Date: 20120123
  Transmission Date: 20120608
  Serious: Yes (Hospitalization)
  Sender: FDA-Public Use
  Company Number: SE-PFIZER INC-2009264178

PATIENT
  Age: 72 Year
  Sex: Male
  Weight: 85 kg

DRUGS (14)
  1. SUNITINIB MALATE [Suspect]
     Indication: PROSTATE CANCER
     Dosage: 37.5 MG, 1X/DAY
     Route: 048
     Dates: start: 20090522, end: 20090709
  2. LEUPRORELIN [Concomitant]
     Indication: PROSTATE CANCER
     Dosage: UNK
     Dates: start: 20060101
  3. PARACETAMOL [Concomitant]
     Indication: PROCTALGIA
     Dosage: UNK
     Dates: start: 20090707
  4. ENALAPRIL [Concomitant]
     Indication: HYPERTENSION
     Dosage: UNK
     Dates: start: 20090201
  5. OMEPRAZOLE [Concomitant]
     Indication: ABDOMINAL DISTENSION
     Dosage: UNK
     Dates: start: 20090126
  6. ZOLPIDEM [Concomitant]
     Indication: INSOMNIA
     Dosage: UNK
     Dates: start: 20090212
  7. PREDNISOLONE [Suspect]
     Indication: PROSTATE CANCER
     Dosage: 5 MG, 2X/DAY
     Dates: start: 20090522
  8. TENORMIN [Concomitant]
     Indication: HYPERTENSION
     Dosage: UNK
     Dates: start: 20020101
  9. ESTRADURIN [Concomitant]
     Indication: PROSTATE CANCER
     Dosage: UNK
     Dates: start: 20060101
  10. ACETAMINOPHEN W/ CODEINE [Concomitant]
     Indication: BONE PAIN
     Dosage: UNK
     Dates: start: 20081029
  11. SIMVASTATIN [Concomitant]
     Indication: VISCERAL ARTERIAL ISCHAEMIA
     Dosage: UNK
     Dates: start: 20090522
  12. ASPIRIN [Concomitant]
     Indication: HYPERTENSION
     Dosage: UNK
  13. OXYCODONE HCL [Concomitant]
     Indication: PROCTALGIA
     Dosage: UNK
     Dates: start: 20090709
  14. XYLOPROCT [Concomitant]
     Indication: PROCTALGIA
     Dosage: UNK
     Dates: start: 20090618

REACTIONS (1)
  - RECTAL ULCER [None]
